FAERS Safety Report 9883624 (Version 1)
Quarter: 2014Q1

REPORT INFORMATION
  Report Type: Spontaneous
  Country: US (occurrence: US)
  Receive Date: 20140210
  Receipt Date: 20140210
  Transmission Date: 20141002
  Serious: Yes (Other)
  Sender: FDA-Public Use
  Company Number: US-ROCHE-1342358

PATIENT
  Sex: Male

DRUGS (2)
  1. AVASTIN [Suspect]
     Indication: GLIOBLASTOMA MULTIFORME
     Route: 065
  2. KEPPRA [Concomitant]

REACTIONS (6)
  - Convulsion [Not Recovered/Not Resolved]
  - Blood pressure fluctuation [Unknown]
  - Amnesia [Not Recovered/Not Resolved]
  - Personality disorder [Not Recovered/Not Resolved]
  - Malaise [Not Recovered/Not Resolved]
  - Hypertension [Not Recovered/Not Resolved]
